FAERS Safety Report 8625462-5 (Version None)
Quarter: 2012Q3

REPORT INFORMATION
  Report Type: 
  Country: None (occurrence: None)
  Receive Date: 20120827
  Receipt Date: 20110928
  Transmission Date: 20120928
  Serious: Yes (Hospitalization)
  Sender: FDA-Public Use
  Company Number: CO-ROCHE-1001991

PATIENT
  Sex: Male

DRUGS (7)
  1. PREDNISOLONE [Concomitant]
  2. XOLAIR [Suspect]
     Indication: ASTHMA
     Dates: start: 20110702
  3. ALBUTEROL SULATE [Concomitant]
  4. THEOPHYLLINE [Concomitant]
  5. BECLOMETHASONE DIPROPIONATE [Concomitant]
  6. IPRATROPIUM BROMIDE [Concomitant]
  7. FLUTICASONE PROPIONATE/SALMETEROL [Concomitant]

REACTIONS (5)
  - CHILLS [None]
  - FATIGUE [None]
  - ASTHMATIC CRISIS [None]
  - PAIN IN EXTREMITY [None]
  - PYREXIA [None]
